FAERS Safety Report 20290450 (Version 1)
Quarter: 2022Q1

REPORT INFORMATION
  Report Type: Spontaneous
  Country: US (occurrence: None)
  Receive Date: 20220104
  Receipt Date: 20220104
  Transmission Date: 20220423
  Serious: Yes (Other)
  Sender: FDA-Public Use
  Company Number: US-Hikma Pharmaceuticals USA Inc.-US-H14001-21-05611

PATIENT
  Age: 69 Year
  Sex: Female

DRUGS (10)
  1. ALPRAZOLAM [Suspect]
     Active Substance: ALPRAZOLAM
     Indication: Anxiety
     Dosage: SLOWLY INCREASED THROUGHOUT THE 18-YEAR DURATION FROM 0.5MG TO 2MG
     Route: 065
  2. ALPRAZOLAM [Suspect]
     Active Substance: ALPRAZOLAM
     Indication: Depression
  3. CHLORDIAZEPOXIDE [Concomitant]
     Active Substance: CHLORDIAZEPOXIDE
     Indication: Drug dependence
     Route: 065
  4. CHLORDIAZEPOXIDE [Concomitant]
     Active Substance: CHLORDIAZEPOXIDE
     Route: 065
  5. CHLORDIAZEPOXIDE [Concomitant]
     Active Substance: CHLORDIAZEPOXIDE
     Dosage: 60MG (25 MG TWICE DAILY IN THE MORNING AND 10MG AT NOON)
     Route: 065
  6. CHLORDIAZEPOXIDE [Concomitant]
     Active Substance: CHLORDIAZEPOXIDE
     Route: 065
  7. GABAPENTIN [Concomitant]
     Active Substance: GABAPENTIN
     Indication: Withdrawal syndrome
     Route: 065
  8. GABAPENTIN [Concomitant]
     Active Substance: GABAPENTIN
     Route: 065
  9. GABAPENTIN [Concomitant]
     Active Substance: GABAPENTIN
     Dosage: AT BEDTIME
     Route: 065
  10. PRAZOSIN [Concomitant]
     Active Substance: PRAZOSIN
     Indication: Withdrawal syndrome
     Route: 065

REACTIONS (12)
  - Drug dependence [Unknown]
  - Dizziness [Unknown]
  - Palpitations [Unknown]
  - Affective disorder [Unknown]
  - Hyperaesthesia [Unknown]
  - Dysgeusia [Unknown]
  - Withdrawal syndrome [Unknown]
  - Muscle twitching [Unknown]
  - Anxiety [Unknown]
  - Abnormal dreams [Unknown]
  - Nightmare [Unknown]
  - Fatigue [Unknown]
